FAERS Safety Report 15932763 (Version 1)
Quarter: 2019Q1

REPORT INFORMATION
  Report Type: Other
  Country: US (occurrence: US)
  Receive Date: 20190207
  Receipt Date: 20190207
  Transmission Date: 20190417
  Serious: No
  Sender: FDA-Public Use
  Company Number: US-SLATE RUN PHARMACEUTICALS-SLTR-AE-19-8

PATIENT
  Age: 36 Month
  Sex: Female

DRUGS (6)
  1. RENAGEL [Concomitant]
     Active Substance: SEVELAMER HYDROCHLORIDE
  2. PARICALCITOL. [Suspect]
     Active Substance: PARICALCITOL
     Route: 042
  3. CALCIUM SUPPLEMENT [Concomitant]
     Active Substance: CALCIUM
  4. RENVELA [Concomitant]
     Active Substance: SEVELAMER CARBONATE
  5. 70436-007-04 CINACALCET HYDROCHLORIDE TABLET 30MG [Suspect]
     Active Substance: CINACALCET HYDROCHLORIDE
     Indication: HYPERPARATHYROIDISM
     Dosage: PEAK EFFECTIVE DOSE WAS 2.92 (MG/KG/DAY).
  6. 70436-007-04 CINACALCET HYDROCHLORIDE TABLET 30MG [Suspect]
     Active Substance: CINACALCET HYDROCHLORIDE
     Indication: HYPERPARATHYROIDISM
     Dosage: INITIAL DOSE WAS 0.56 (MG/KG/DAY).

REACTIONS (3)
  - Off label use [Unknown]
  - Hypercalcaemia [Unknown]
  - Hypocalcaemia [Unknown]
